FAERS Safety Report 7137134-7 (Version None)
Quarter: 2010Q4

REPORT INFORMATION
  Report Type: 
  Country: None (occurrence: None)
  Receive Date: 20101119
  Receipt Date: 20101014
  Transmission Date: 20110411
  Serious: Yes (Death)
  Sender: FDA-Public Use
  Company Number: 1053087-2010-00011

PATIENT
  Age: 44 Year
  Sex: Female
  Weight: 93.8946 kg

DRUGS (3)
  1. SODIUM CITRATE [Suspect]
     Indication: APHERESIS
     Dosage: 1 BAG PER PROCEDURE/IV
     Route: 042
     Dates: start: 20101011
  2. (SEPARATOR, AUTOMATED, BLOOD CELL, DIAGNOSTIC - GKT) [Concomitant]
  3. PCS2 (06002-110-NA) - HAEMONETICS [Concomitant]

REACTIONS (2)
  - CARDIAC ARREST [None]
  - POST PROCEDURAL COMPLICATION [None]
